FAERS Safety Report 5240174-6 (Version None)
Quarter: 2007Q1

REPORT INFORMATION
  Report Type: 
  Country: None (occurrence: None)
  Receive Date: 20070218
  Receipt Date: 20070214
  Transmission Date: 20070707
  Serious: Yes (Death)
  Sender: FDA-Public Use
  Company Number: JP/980428/516

PATIENT
  Age: 30 Year
  Sex: Male

DRUGS (1)
  1. SUBUTEX [Suspect]

REACTIONS (3)
  - ASPHYXIA [None]
  - DEATH [None]
  - INTENTIONAL DRUG MISUSE [None]
